FAERS Safety Report 17498106 (Version 3)
Quarter: 2020Q1

REPORT INFORMATION
  Report Type: Report from Study
  Country: BE (occurrence: BE)
  Receive Date: 20200304
  Receipt Date: 20200325
  Transmission Date: 20200409
  Serious: Yes (Other)
  Sender: FDA-Public Use
  Company Number: BE-BAYER-2020-031573

PATIENT
  Age: 86 Year
  Sex: Male

DRUGS (2)
  1. NEXAVAR [Suspect]
     Active Substance: SORAFENIB
     Indication: HEPATOCELLULAR CARCINOMA
     Dosage: 400 MG
     Dates: start: 20200218
  2. TAMSULOSIN [Concomitant]
     Active Substance: TAMSULOSIN
     Dosage: UNK

REACTIONS (8)
  - Tinnitus [Recovering/Resolving]
  - Palmar-plantar erythrodysaesthesia syndrome [Not Recovered/Not Resolved]
  - Hypertension [Recovered/Resolved]
  - Nervousness [Not Recovered/Not Resolved]
  - Epistaxis [Recovering/Resolving]
  - Skin disorder [None]
  - Pruritus [Recovering/Resolving]
  - Off label use [None]

NARRATIVE: CASE EVENT DATE: 20200220
